FAERS Safety Report 13334180 (Version 1)
Quarter: 2017Q1

REPORT INFORMATION
  Report Type: Report from Study
  Country: IL (occurrence: IL)
  Receive Date: 20170313
  Receipt Date: 20170313
  Transmission Date: 20170428
  Serious: Yes (Hospitalization)
  Sender: FDA-Public Use
  Company Number: IL-BIOGEN-2017BI00370540

PATIENT
  Age: 74 Year
  Sex: Female

DRUGS (1)
  1. AVONEX [Suspect]
     Active Substance: INTERFERON BETA-1A
     Indication: MULTIPLE SCLEROSIS
     Route: 030
     Dates: start: 20031214

REACTIONS (3)
  - Fall [Recovered/Resolved]
  - General physical condition abnormal [Unknown]
  - Communication disorder [Unknown]

NARRATIVE: CASE EVENT DATE: 20170302
